FAERS Safety Report 8795634 (Version 2)
Quarter: 2015Q2

REPORT INFORMATION
  Report Type: Report from Study
  Country: US (occurrence: US)
  Receive Date: 20120917
  Receipt Date: 20150623
  Transmission Date: 20150821
  Serious: Yes (Death)
  Sender: FDA-Public Use
  Company Number: US-ROCHE-1128580

PATIENT
  Sex: Male

DRUGS (23)
  1. LACTULOSE. [Concomitant]
     Active Substance: LACTULOSE
     Route: 065
  2. FENTANYL. [Concomitant]
     Active Substance: FENTANYL
  3. AVASTIN [Suspect]
     Active Substance: BEVACIZUMAB
     Indication: HEPATIC CANCER
     Dosage: 500 MG
     Route: 042
     Dates: start: 20060630
  4. CELEBREX [Concomitant]
     Active Substance: CELECOXIB
     Dosage: 1 OR 2 EVERY DAY
     Route: 065
  5. MS CONTIN [Concomitant]
     Active Substance: MORPHINE SULFATE
     Route: 065
  6. COLACE [Concomitant]
     Active Substance: DOCUSATE SODIUM
     Dosage: 100 MG 2 TO 3 BID
     Route: 065
  7. DURAGESIC [Concomitant]
     Active Substance: FENTANYL
     Dosage: PATCH CHANGEED EVERY 72 HOURS
     Route: 065
  8. VICODIN [Concomitant]
     Active Substance: ACETAMINOPHEN\HYDROCODONE BITARTRATE
  9. DOXORUBICIN [Concomitant]
     Active Substance: DOXORUBICIN
     Route: 065
  10. DOXORUBICIN [Concomitant]
     Active Substance: DOXORUBICIN
     Route: 065
  11. AVASTIN [Suspect]
     Active Substance: BEVACIZUMAB
     Indication: NEOPLASM MALIGNANT
  12. DOXORUBICIN [Concomitant]
     Active Substance: DOXORUBICIN
     Route: 065
  13. NIZORAL [Concomitant]
     Active Substance: KETOCONAZOLE
     Route: 065
  14. KADIAN [Concomitant]
     Active Substance: MORPHINE SULFATE
     Route: 065
  15. PAMIDRONATE [Concomitant]
     Active Substance: PAMIDRONATE DISODIUM
     Route: 065
  16. OXYCODONE [Concomitant]
     Active Substance: OXYCODONE
  17. METHOCARBAMOL. [Concomitant]
     Active Substance: METHOCARBAMOL
  18. KAYEXALATE [Concomitant]
     Active Substance: SODIUM POLYSTYRENE SULFONATE
  19. COMPAZINE [Concomitant]
     Active Substance: PROCHLORPERAZINE MALEATE
     Route: 048
  20. AVASTIN [Suspect]
     Active Substance: BEVACIZUMAB
     Indication: HEPATOBLASTOMA
     Route: 042
  21. COMPAZINE [Concomitant]
     Active Substance: PROCHLORPERAZINE MALEATE
     Route: 065
  22. PREVACID [Concomitant]
     Active Substance: LANSOPRAZOLE
  23. SORBITOL. [Concomitant]
     Active Substance: SORBITOL
     Route: 065

REACTIONS (27)
  - Hypercalcaemia [Recovered/Resolved]
  - Fluid intake reduced [Unknown]
  - Bradyphrenia [Unknown]
  - Exophthalmos [Unknown]
  - Stomatitis [Unknown]
  - Skin turgor decreased [Unknown]
  - Vomiting [Unknown]
  - Nausea [Unknown]
  - Mental status changes [Unknown]
  - Mucosal dryness [Unknown]
  - Dyspnoea exertional [Unknown]
  - Abdominal pain upper [Unknown]
  - Death [Fatal]
  - Hyponatraemia [Recovered/Resolved]
  - Lethargy [Unknown]
  - Confusional state [Unknown]
  - Adrenal insufficiency [Unknown]
  - Hyperkalaemia [Recovered/Resolved]
  - Mental impairment [Unknown]
  - Tachycardia [Unknown]
  - Lid sulcus deepened [Unknown]
  - Oedema peripheral [Unknown]
  - Hiccups [Unknown]
  - Abnormal dreams [Unknown]
  - Ascites [Unknown]
  - Cachexia [Unknown]
  - Off label use [Unknown]
